FAERS Safety Report 7660608-7 (Version None)
Quarter: 2011Q3

REPORT INFORMATION
  Report Type: 
  Country: None (occurrence: None)
  Receive Date: 20110805
  Receipt Date: 20101101
  Transmission Date: 20111222
  Serious: No
  Sender: FDA-Public Use
  Company Number: US-ABBOTT-10P-163-0682528-00

PATIENT
  Sex: Female
  Weight: 72.64 kg

DRUGS (6)
  1. NIASPAN [Suspect]
     Indication: BLOOD CHOLESTEROL ABNORMAL
     Dates: start: 20101001, end: 20101001
  2. NIASPAN [Suspect]
     Dates: start: 20100901, end: 20101001
  3. METFFORMIN HYDROCHLORIDE [Concomitant]
     Indication: DIABETES MELLITUS
  4. NIASPAN [Suspect]
     Dates: start: 20101001
  5. GLUCOPHAGE [Concomitant]
     Indication: DIABETES MELLITUS
  6. NIASPAN [Suspect]
     Dates: start: 20100901, end: 20100901

REACTIONS (1)
  - DIARRHOEA [None]
